FAERS Safety Report 8535911-9 (Version None)
Quarter: 2012Q3

REPORT INFORMATION
  Report Type: 
  Country: None (occurrence: None)
  Receive Date: 20120725
  Receipt Date: 20120718
  Transmission Date: 20120928
  Serious: Yes (Other)
  Sender: FDA-Public Use
  Company Number: PHHY2012MX062894

PATIENT
  Sex: Female

DRUGS (2)
  1. OMEPRAZOLE [Concomitant]
     Dosage: 20 MG, UNK
  2. ZOLEDRONOC ACID [Suspect]
     Indication: OSTEOPOROSIS
     Dosage: 5 MG, ONCE A YEAR
     Route: 042
     Dates: start: 20100201

REACTIONS (1)
  - HEPATIC STEATOSIS [None]
